FAERS Safety Report 22395858 (Version 2)
Quarter: 2023Q2

REPORT INFORMATION
  Report Type: Spontaneous
  Country: US (occurrence: US)
  Receive Date: 20230601
  Receipt Date: 20230614
  Transmission Date: 20230721
  Serious: Yes (Hospitalization)
  Sender: FDA-Public Use
  Company Number: US-TEVA-2023-US-2891120

PATIENT
  Age: 61 Year
  Sex: Female

DRUGS (2)
  1. ARGATROBAN [Suspect]
     Active Substance: ARGATROBAN
     Indication: Thrombosis prophylaxis
     Route: 065
  2. APIXABAN [Concomitant]
     Active Substance: APIXABAN
     Indication: Atrial fibrillation
     Route: 065

REACTIONS (2)
  - Skin weeping [Unknown]
  - Haemoptysis [Unknown]
